FAERS Safety Report 4563834-9 (Version None)
Quarter: 2005Q1

REPORT INFORMATION
  Report Type: 
  Country: None (occurrence: None)
  Receive Date: 20050125
  Receipt Date: 20050112
  Transmission Date: 20050727
  Serious: Yes (Hospitalization)
  Sender: FDA-Public Use
  Company Number: 2005011635

PATIENT
  Age: 55 Year
  Sex: Female

DRUGS (1)
  1. ZOLOFT [Suspect]
     Indication: DEPRESSION
     Dosage: 50 MG (50 MG, 1 IN 1 D), ORAL
     Route: 048
     Dates: start: 20031001, end: 20040322

REACTIONS (12)
  - ALOPECIA [None]
  - CARCINOID SYNDROME [None]
  - COLITIS [None]
  - COLITIS MICROSCOPIC [None]
  - ECZEMA [None]
  - EOSINOPHILIA [None]
  - FAECAL OCCULT BLOOD POSITIVE [None]
  - GASTROINTESTINAL DISORDER [None]
  - HELICOBACTER GASTRITIS [None]
  - LYMPHOMA [None]
  - SKIN INFLAMMATION [None]
  - WEIGHT DECREASED [None]
